FAERS Safety Report 4426826-6 (Version None)
Quarter: 2004Q3

REPORT INFORMATION
  Report Type: 
  Country: None (occurrence: None)
  Receive Date: 20040816
  Receipt Date: 20040802
  Transmission Date: 20050211
  Serious: Yes (Hospitalization)
  Sender: FDA-Public Use
  Company Number: ZA-GLAXOSMITHKLINE-B0341325A

PATIENT
  Age: 49 Year
  Sex: Male
  Weight: 90 kg

DRUGS (5)
  1. ZYBAN [Suspect]
     Indication: EX-SMOKER
     Dosage: 150MG TWICE PER DAY
     Dates: start: 20040101, end: 20040101
  2. ATENOLOL [Concomitant]
     Indication: HYPERTENSION
     Dosage: 50MG PER DAY
     Route: 048
  3. TRENTAL [Concomitant]
     Indication: ANGIOPATHY
     Dosage: 400MG PER DAY
     Route: 048
  4. ECOTRIN [Concomitant]
     Indication: ANGIOPATHY
     Dosage: 81MG PER DAY
     Route: 048
  5. COVERSYL PLUS [Concomitant]
     Indication: HYPERTENSION
     Dosage: 4MG PER DAY
     Route: 048

REACTIONS (3)
  - CHEST PAIN [None]
  - CORONARY ARTERY SURGERY [None]
  - TRIPLE VESSEL BYPASS GRAFT [None]
